FAERS Safety Report 20200690 (Version 2)
Quarter: 2021Q4

REPORT INFORMATION
  Report Type: Spontaneous
  Country: DK (occurrence: DK)
  Receive Date: 20211217
  Receipt Date: 20211221
  Transmission Date: 20220304
  Serious: Yes (Death, Other)
  Sender: FDA-Public Use
  Company Number: DK-ROCHE-2970470

PATIENT
  Age: 53 Year
  Sex: Female

DRUGS (13)
  1. RITUXIMAB [Suspect]
     Active Substance: RITUXIMAB
     Indication: Chronic lymphocytic leukaemia
     Dosage: UNK
     Route: 065
     Dates: start: 2011
  2. FLUDARABINE [Suspect]
     Active Substance: FLUDARABINE PHOSPHATE
     Indication: Chronic lymphocytic leukaemia
     Dosage: UNK
     Dates: start: 2011
  3. FLUDARABINE [Suspect]
     Active Substance: FLUDARABINE PHOSPHATE
     Dosage: UNK
     Dates: start: 201601
  4. CYCLOPHOSPHAMIDE [Suspect]
     Active Substance: CYCLOPHOSPHAMIDE
     Indication: Chronic lymphocytic leukaemia
     Dosage: UNK
     Dates: start: 2011
  5. CYCLOPHOSPHAMIDE [Suspect]
     Active Substance: CYCLOPHOSPHAMIDE
     Dosage: UNK
     Dates: start: 201601
  6. TENOFOVIR [Concomitant]
     Active Substance: TENOFOVIR
     Dosage: 245 MG, 1X/DAY
  7. PIPERACILLIN [Concomitant]
     Active Substance: PIPERACILLIN
  8. IBRUTINIB [Concomitant]
     Active Substance: IBRUTINIB
     Dosage: 420 MG, 1X/DAY
     Dates: start: 201602
  9. IBRUTINIB [Concomitant]
     Active Substance: IBRUTINIB
     Dosage: UNK
     Dates: start: 201608
  10. VENETOCLAX [Concomitant]
     Active Substance: VENETOCLAX
     Dosage: UNK
     Dates: start: 201910
  11. DICLOFENAC SODIUM [Concomitant]
     Active Substance: DICLOFENAC SODIUM
     Indication: Abdominal pain upper
  12. DICLOFENAC SODIUM [Concomitant]
     Active Substance: DICLOFENAC SODIUM
     Indication: Back pain
  13. TAZOBACTAM [Concomitant]
     Active Substance: TAZOBACTAM

REACTIONS (2)
  - Sepsis [Fatal]
  - Hepatitis B reactivation [Unknown]

NARRATIVE: CASE EVENT DATE: 20210701
